FAERS Safety Report 19373959 (Version 1)
Quarter: 2021Q2

REPORT INFORMATION
  Report Type: Report from Study
  Country: BR (occurrence: BR)
  Receive Date: 20210603
  Receipt Date: 20210603
  Transmission Date: 20210717
  Serious: Yes (Other)
  Sender: FDA-Public Use
  Company Number: BR-TAKEDA-BR202018677

PATIENT
  Sex: Male
  Weight: 21.7 kg

DRUGS (2)
  1. HEMO?8R [Suspect]
     Active Substance: ANTIHEMOPHILIC FACTOR, HUMAN RECOMBINANT
     Indication: FACTOR VIII DEFICIENCY
     Dosage: 2500 INTERNATIONAL UNIT, AS REQ^D
     Route: 042
     Dates: start: 20180912
  2. HEMO?8R [Suspect]
     Active Substance: ANTIHEMOPHILIC FACTOR, HUMAN RECOMBINANT
     Dosage: 2500 INTERNATIONAL UNIT, AS REQ^D
     Route: 042
     Dates: start: 20190118

REACTIONS (5)
  - Upper limb fracture [Unknown]
  - Nasal septum deviation [Unknown]
  - Underweight [Unknown]
  - Weight increased [Unknown]
  - Inappropriate schedule of product administration [Unknown]
